FAERS Safety Report 13384184 (Version 1)
Quarter: 2017Q1

REPORT INFORMATION
  Report Type: Spontaneous
  Country: US (occurrence: US)
  Receive Date: 20170329
  Receipt Date: 20170329
  Transmission Date: 20170429
  Serious: No
  Sender: FDA-Public Use
  Company Number: US-SHIRE-US201707153

PATIENT
  Age: 77 Year
  Sex: Female
  Weight: 62.59 kg

DRUGS (1)
  1. XIIDRA [Suspect]
     Active Substance: LIFITEGRAST
     Indication: DRY EYE
     Dosage: 1 GTT OU, 2X/DAY:BID
     Route: 047
     Dates: start: 2016

REACTIONS (1)
  - Dysgeusia [Not Recovered/Not Resolved]
